FAERS Safety Report 8200536 (Version 11)
Quarter: 2020Q4

REPORT INFORMATION
  Report Type: Report from Study
  Country: JP (occurrence: JP)
  Receive Date: 20111026
  Receipt Date: 20201207
  Transmission Date: 20210114
  Serious: Yes (Death, Hospitalization, Disabling, Other)
  Sender: FDA-Public Use
  Company Number: JP-PFIZER INC-2011253009

PATIENT
  Age: 42 Year
  Sex: Male
  Weight: 72 kg

DRUGS (20)
  1. SUNITINIB MALATE. [Suspect]
     Active Substance: SUNITINIB MALATE
     Dosage: 37.5 MG, 1X/DAY
     Route: 048
     Dates: start: 20110922, end: 20120128
  2. ZOMETA [Suspect]
     Active Substance: ZOLEDRONIC ACID
     Indication: RENAL CELL CARCINOMA
     Dosage: 4 MG, MONTHLY
     Route: 042
     Dates: start: 20090430, end: 20101204
  3. TORISEL [Concomitant]
     Active Substance: TEMSIROLIMUS
     Indication: RENAL CELL CARCINOMA
     Dosage: 25 MG, WEEKLY
     Route: 042
     Dates: start: 20110621, end: 20110829
  4. THYRADIN [Concomitant]
     Active Substance: LEVOTHYROXINE
     Dosage: 50 UG, 1X/DAY
     Route: 048
     Dates: start: 20090522
  5. MAGMITT [Concomitant]
     Active Substance: MAGNESIUM OXIDE
     Indication: CONSTIPATION
     Dosage: 330 MG, 3X/DAY
     Route: 048
  6. LAC B [Concomitant]
     Active Substance: BIFIDOBACTERIUM SPP.
     Dosage: 1 G, 3X/DAY
     Route: 048
     Dates: start: 20090709, end: 20090711
  7. SUNITINIB MALATE. [Suspect]
     Active Substance: SUNITINIB MALATE
     Indication: RENAL CELL CARCINOMA
     Dosage: 50 MG, CYCLIC, 4-WEEK ON/2-WEEK OFF
     Route: 048
     Dates: start: 20090504, end: 20110121
  8. DEXAMETHASONE. [Concomitant]
     Active Substance: DEXAMETHASONE
     Dosage: UNK
     Route: 061
     Dates: start: 20090709
  9. SUNITINIB MALATE. [Suspect]
     Active Substance: SUNITINIB MALATE
     Dosage: 50 MG, 1X/DAY
     Route: 048
     Dates: start: 20110830
  10. GASTER [Concomitant]
     Active Substance: FAMOTIDINE
     Indication: PROPHYLAXIS
     Dosage: 20 MG, 1X/DAY
     Route: 048
     Dates: start: 20090518
  11. UREPEARL [Concomitant]
     Active Substance: UREA
     Dosage: UNK
     Route: 061
     Dates: start: 20090527
  12. TORISEL [Concomitant]
     Active Substance: TEMSIROLIMUS
     Dosage: 25 MG, WEEKLY
     Route: 042
     Dates: start: 20120611, end: 20120827
  13. SUNITINIB MALATE. [Suspect]
     Active Substance: SUNITINIB MALATE
     Indication: RENAL CELL CARCINOMA
     Dosage: 37.5 MG, 1X/DAY
     Route: 048
     Dates: start: 20110221, end: 20110512
  14. SUNITINIB MALATE. [Suspect]
     Active Substance: SUNITINIB MALATE
     Dosage: 37.5 MG, 1X/DAY
     Route: 048
     Dates: start: 20120214, end: 20120528
  15. ZOMETA [Suspect]
     Active Substance: ZOLEDRONIC ACID
     Indication: METASTASES TO BONE
  16. NAUZELIN [Concomitant]
     Active Substance: DOMPERIDONE
     Dosage: 1 DF, 1X/DAY
     Route: 054
     Dates: start: 20090708, end: 20090711
  17. PRIMPERAN [Concomitant]
     Active Substance: METOCLOPRAMIDE HYDROCHLORIDE
     Dosage: 5 MG, 1X/DAY
     Dates: start: 20090710, end: 20090711
  18. HACHIAZULE [Concomitant]
     Dosage: UNK
     Dates: start: 20090710
  19. PURSENNID [Concomitant]
     Indication: CONSTIPATION
     Dosage: 24 MG, 1X/DAY
     Route: 048
     Dates: start: 20090505, end: 20090608
  20. DECADRON [Concomitant]
     Active Substance: DEXAMETHASONE
     Indication: RENAL CELL CARCINOMA
     Dosage: 1 MG, 1X/DAY
     Route: 048
     Dates: start: 20090518

REACTIONS (2)
  - Neoplasm progression [Fatal]
  - Osteonecrosis of jaw [Not Recovered/Not Resolved]

NARRATIVE: CASE EVENT DATE: 20090701
